FAERS Safety Report 4851906-0 (Version None)
Quarter: 2005Q4

REPORT INFORMATION
  Report Type: 
  Country: None (occurrence: None)
  Receive Date: 20051209
  Receipt Date: 20051129
  Transmission Date: 20060501
  Serious: Yes (Hospitalization)
  Sender: FDA-Public Use
  Company Number: SGBI-2005-00567

PATIENT
  Age: 55 Year
  Sex: Male
  Weight: 87 kg

DRUGS (1)
  1. ANAGRELIDE HCL [Suspect]
     Indication: THROMBOCYTOPENIA
     Dosage: 2.5 MG/DAY, OTHER
     Route: 050
     Dates: start: 20051014

REACTIONS (3)
  - COMPLEX PARTIAL SEIZURES [None]
  - HAEMOGLOBIN DECREASED [None]
  - RADIAL NERVE PALSY [None]
